FAERS Safety Report 23404638 (Version 1)
Quarter: 2024Q1

REPORT INFORMATION
  Report Type: Spontaneous
  Country: JP (occurrence: JP)
  Receive Date: 20240116
  Receipt Date: 20240116
  Transmission Date: 20240410
  Serious: Yes (Other)
  Sender: FDA-Public Use
  Company Number: JP-AMGEN-JPNSP2024005831

PATIENT
  Age: 79 Year
  Sex: Male

DRUGS (2)
  1. LUMAKRAS [Suspect]
     Active Substance: SOTORASIB
     Indication: Non-small cell lung cancer stage IV
     Dosage: 960 MILLIGRAM
     Route: 048
  2. LUMAKRAS [Suspect]
     Active Substance: SOTORASIB
     Dosage: UNK, DOSE REDUCTION
     Route: 048

REACTIONS (4)
  - Non-small cell lung cancer [Unknown]
  - Liver disorder [Unknown]
  - Rash [Unknown]
  - Therapy partial responder [Unknown]
